FAERS Safety Report 8181253-3 (Version None)
Quarter: 2012Q1

REPORT INFORMATION
  Report Type: 
  Country: None (occurrence: None)
  Receive Date: 20120302
  Receipt Date: 20120223
  Transmission Date: 20120608
  Serious: Yes (Hospitalization, Other)
  Sender: FDA-Public Use
  Company Number: US-BAYER-2011-089557

PATIENT
  Age: 41 Year
  Sex: Female
  Weight: 112.2 kg

DRUGS (6)
  1. DROSPIRENONE AND ETHINYL ESTRADIOL [Suspect]
     Indication: HORMONE THERAPY
     Dosage: UNK
     Dates: start: 20080101, end: 20090101
  2. FLONASE [Concomitant]
     Dosage: 50 MCG, BID
     Route: 055
     Dates: start: 20080903
  3. YASMIN [Suspect]
     Indication: HORMONE THERAPY
     Dosage: UNK
     Dates: start: 20010101, end: 20080901
  4. PROTONIX [Concomitant]
     Dosage: 40 MG, QD
     Route: 048
  5. IBUPROFEN TABLETS [Concomitant]
     Dosage: 800 MG, UNK
  6. FEXOFENADINE HYDROCHLORIDE [Concomitant]
     Dosage: 180 MG, QD
     Route: 048
     Dates: start: 20080903

REACTIONS (11)
  - ABDOMINAL PAIN [None]
  - DIARRHOEA [None]
  - GASTROOESOPHAGEAL REFLUX DISEASE [None]
  - ANXIETY [None]
  - GASTRITIS [None]
  - EMOTIONAL DISTRESS [None]
  - GALLBLADDER POLYP [None]
  - INJURY [None]
  - GALLBLADDER INJURY [None]
  - CHOLECYSTITIS CHRONIC [None]
  - GENERAL PHYSICAL HEALTH DETERIORATION [None]
